FAERS Safety Report 17475393 (Version 1)
Quarter: 2020Q1

REPORT INFORMATION
  Report Type: Report from Study
  Country: GB (occurrence: GB)
  Receive Date: 20200228
  Receipt Date: 20200228
  Transmission Date: 20200409
  Serious: Yes (Hospitalization, Other)
  Sender: FDA-Public Use
  Company Number: GB-JNJFOC-20190503859

PATIENT
  Sex: Female

DRUGS (2)
  1. STELARA [Suspect]
     Active Substance: USTEKINUMAB
     Indication: PSORIASIS
     Route: 058
     Dates: start: 20180413
  2. STELARA [Suspect]
     Active Substance: USTEKINUMAB
     Route: 058
     Dates: start: 20180413

REACTIONS (5)
  - Impaired healing [Recovered/Resolved]
  - Surgery [Unknown]
  - Post procedural complication [Unknown]
  - Carpal tunnel syndrome [Recovered/Resolved]
  - Psoriasis [Recovered/Resolved]
